FAERS Safety Report 13205575 (Version 1)
Quarter: 2017Q1

REPORT INFORMATION
  Report Type: Spontaneous
  Country: US (occurrence: US)
  Receive Date: 20170207
  Receipt Date: 20170207
  Transmission Date: 20170428
  Serious: Yes (Other)
  Sender: FDA-Public Use
  Company Number: None

PATIENT

DRUGS (1)
  1. NORFLOXACIN [Suspect]
     Active Substance: NORFLOXACIN

REACTIONS (8)
  - Muscle contractions involuntary [None]
  - Middle insomnia [None]
  - Tendon pain [None]
  - Neck pain [None]
  - Musculoskeletal pain [None]
  - Headache [None]
  - Myalgia [None]
  - Back pain [None]

NARRATIVE: CASE EVENT DATE: 20130607
